FAERS Safety Report 5672879-7 (Version None)
Quarter: 2008Q1

REPORT INFORMATION
  Report Type: 
  Country: None (occurrence: None)
  Receive Date: 20080319
  Receipt Date: 20071108
  Transmission Date: 20080703
  Serious: No
  Sender: FDA-Public Use
  Company Number: US-ASTRAZENECA-2007UW26094

PATIENT
  Age: 71 Year
  Sex: Male
  Weight: 95.3 kg

DRUGS (3)
  1. SYMBICORT [Suspect]
     Indication: CHRONIC OBSTRUCTIVE PULMONARY DISEASE
     Dosage: 160/4.5 UG
     Route: 055
     Dates: start: 20071001
  2. SPIRIVA [Concomitant]
  3. ALBUTEROL [Concomitant]

REACTIONS (4)
  - ARTHRALGIA [None]
  - BACK PAIN [None]
  - MUSCULOSKELETAL PAIN [None]
  - NECK PAIN [None]
